FAERS Safety Report 17354064 (Version 1)
Quarter: 2020Q1

REPORT INFORMATION
  Report Type: Spontaneous
  Country: US (occurrence: US)
  Receive Date: 20200116
  Receipt Date: 20200116
  Transmission Date: 20200409
  Serious: Yes (Hospitalization)
  Sender: FDA-Public Use
  Company Number: None

PATIENT
  Age: 66 Year
  Sex: Female

DRUGS (17)
  1. ASPIRIN. [Concomitant]
     Active Substance: ASPIRIN
  2. FISH OIL [Concomitant]
     Active Substance: FISH OIL
  3. ACETAMIN [Concomitant]
     Active Substance: ACETAMINOPHEN
  4. DOCUSATE [Concomitant]
     Active Substance: DOCUSATE
  5. LISINOPRIL. [Concomitant]
     Active Substance: LISINOPRIL
  6. BENEFIBER [Concomitant]
     Active Substance: STARCH, WHEAT
  7. TRAMADOL. [Concomitant]
     Active Substance: TRAMADOL
  8. DALFAMPRIDINE 10MG [Suspect]
     Active Substance: DALFAMPRIDINE
     Indication: MULTIPLE SCLEROSIS
     Route: 048
     Dates: start: 20181011
  9. BACLOFEN. [Concomitant]
     Active Substance: BACLOFEN
  10. PROBIOTIC [Concomitant]
     Active Substance: PROBIOTICS NOS
  11. MIRALAX [Concomitant]
     Active Substance: POLYETHYLENE GLYCOL 3350
  12. SIMVASTATIN. [Concomitant]
     Active Substance: SIMVASTATIN
  13. VITAMIN C [Concomitant]
     Active Substance: ASCORBIC ACID
  14. BENADRYL [Concomitant]
     Active Substance: DIPHENHYDRAMINE HYDROCHLORIDE
  15. AVONEX [Concomitant]
     Active Substance: INTERFERON BETA-1A
  16. VITAMIN E [Concomitant]
     Active Substance: .ALPHA.-TOCOPHEROL
  17. GABAPENTIN. [Concomitant]
     Active Substance: GABAPENTIN

REACTIONS (1)
  - Herpes zoster [None]

NARRATIVE: CASE EVENT DATE: 20191223
